FAERS Safety Report 11742607 (Version 1)
Quarter: 2015Q4

REPORT INFORMATION
  Report Type: Spontaneous
  Country: US (occurrence: US)
  Receive Date: 20151116
  Receipt Date: 20151116
  Transmission Date: 20160304
  Serious: No
  Sender: FDA-Public Use
  Company Number: US-ACTELION PHARMACEUTICALS US, INC.-A-NJ2015-120467

PATIENT
  Age: 77 Year
  Sex: Female

DRUGS (4)
  1. TREPROSTINIL DIOLAMIN [Concomitant]
     Active Substance: TREPROSTINIL DIOLAMINE
  2. TRACLEER [Suspect]
     Active Substance: BOSENTAN
     Indication: PULMONARY ARTERIAL HYPERTENSION
     Dosage: UNK
     Route: 048
  3. TYVASO [Concomitant]
     Active Substance: TREPROSTINIL
     Dosage: 3 BREATHS 2-3 TIMES DAILY
  4. ADCIRCA [Concomitant]
     Active Substance: TADALAFIL

REACTIONS (3)
  - Mass [Unknown]
  - Chest pain [Unknown]
  - Fatigue [Unknown]
